FAERS Safety Report 5662757-1 (Version None)
Quarter: 2008Q1

REPORT INFORMATION
  Report Type: 
  Country: None (occurrence: None)
  Receive Date: 20080313
  Receipt Date: 20080228
  Transmission Date: 20080703
  Serious: Yes (Disabling)
  Sender: FDA-Public Use
  Company Number: GB-AMGEN-US260249

PATIENT
  Sex: Female
  Weight: 88 kg

DRUGS (18)
  1. ENBREL [Suspect]
     Indication: RHEUMATOID ARTHRITIS
     Route: 058
     Dates: start: 20041215, end: 20051101
  2. ASPIRIN [Concomitant]
     Indication: PROPHYLAXIS
     Route: 048
     Dates: start: 20040101
  3. PREDNISOLONE [Concomitant]
     Indication: RHEUMATOID ARTHRITIS
     Route: 048
     Dates: start: 19970101
  4. METFORMIN [Concomitant]
     Indication: TYPE 2 DIABETES MELLITUS
     Route: 048
     Dates: start: 20030101
  5. ALENDRONATE SODIUM [Concomitant]
     Indication: PROPHYLAXIS
     Dosage: 70MG WEEKLY
     Route: 048
     Dates: start: 20050101
  6. ADCAL D3 [Concomitant]
     Indication: PROPHYLAXIS
     Route: 048
     Dates: start: 20050101
  7. FUROSEMIDE [Concomitant]
     Indication: OEDEMA
     Route: 048
     Dates: start: 19980101
  8. LEVOTHYROXINE SODIUM [Concomitant]
     Indication: HYPOTHYROIDISM
     Route: 048
     Dates: start: 20060101
  9. ATENOLOL [Concomitant]
     Indication: HYPERTENSION
     Route: 048
     Dates: start: 20010101
  10. GLIMEPIRIDE [Concomitant]
     Indication: TYPE 2 DIABETES MELLITUS
     Route: 048
     Dates: start: 20040101
  11. FERROUS SULFATE TAB [Concomitant]
     Indication: IRON DEFICIENCY
     Route: 048
     Dates: start: 20060101
  12. TOLTERODINE TARTRATE [Concomitant]
     Indication: POLLAKIURIA
     Route: 048
     Dates: start: 20060101
  13. ACETAMINOPHEN [Concomitant]
     Indication: PAIN
     Dosage: 500 MG EVERY 1 PRN
     Route: 048
     Dates: start: 19970101
  14. CO-DYDRAMOL [Concomitant]
     Indication: PAIN
     Dosage: 1 DOSE EVERY 1 PRN
     Route: 048
     Dates: start: 19970101
  15. NABUMETONE [Concomitant]
     Indication: ANTIINFLAMMATORY THERAPY
     Dosage: 500MG AT NIGHT
     Route: 048
     Dates: start: 20030101
  16. ATORVASTATIN CALCIUM [Concomitant]
     Indication: BLOOD CHOLESTEROL INCREASED
     Dosage: 40MG AT NIGHT
     Route: 048
     Dates: start: 20060101
  17. ROSIGLITAZONE [Concomitant]
     Indication: TYPE 2 DIABETES MELLITUS
     Route: 048
     Dates: start: 20070313
  18. RAMIPRIL [Concomitant]
     Indication: HYPERTENSION
     Route: 048
     Dates: start: 20040101

REACTIONS (2)
  - INFECTED SKIN ULCER [None]
  - PSEUDOMONAS INFECTION [None]
